FAERS Safety Report 21083719 (Version 1)
Quarter: 2022Q3

REPORT INFORMATION
  Report Type: Spontaneous
  Country: US (occurrence: US)
  Receive Date: 20220714
  Receipt Date: 20220714
  Transmission Date: 20221027
  Serious: No
  Sender: FDA-Public Use
  Company Number: US-JAZZ-2022-US-011795

PATIENT
  Sex: Female

DRUGS (2)
  1. EPIDIOLEX [Suspect]
     Active Substance: CANNABIDIOL
     Indication: Generalised tonic-clonic seizure
     Dosage: 90 MILLIGRAM, BID
     Route: 048
     Dates: start: 20220228
  2. EPIDIOLEX [Suspect]
     Active Substance: CANNABIDIOL
     Dosage: 175 MILLIGRAM, BID
     Route: 048

REACTIONS (7)
  - Fatigue [Unknown]
  - Nausea [Unknown]
  - Headache [Unknown]
  - Abdominal pain upper [Unknown]
  - Decreased appetite [Unknown]
  - Mood altered [Unknown]
  - Off label use [Unknown]
